FAERS Safety Report 6148074-4 (Version None)
Quarter: 2009Q2

REPORT INFORMATION
  Report Type: 
  Country: None (occurrence: None)
  Receive Date: 20090408
  Receipt Date: 20090403
  Transmission Date: 20091009
  Serious: Yes (Life-Threatening, Hospitalization)
  Sender: FDA-Public Use
  Company Number: B0566295A

PATIENT
  Sex: Female

DRUGS (4)
  1. VALTREX [Suspect]
     Indication: ORAL HERPES
     Dosage: 500MG TWICE PER DAY
     Route: 048
     Dates: start: 20090119, end: 20090121
  2. SELBEX [Concomitant]
     Dosage: 150MG PER DAY
     Route: 048
     Dates: start: 20090119
  3. POLARAMINE [Concomitant]
     Dosage: 4MG PER DAY
     Route: 048
     Dates: end: 20090128
  4. HIBON [Concomitant]
     Dosage: 40MG PER DAY
     Route: 048
     Dates: end: 20090128

REACTIONS (5)
  - ALTERED STATE OF CONSCIOUSNESS [None]
  - CONVULSION [None]
  - OVARIAN HAEMORRHAGE [None]
  - PETECHIAE [None]
  - THROMBOTIC THROMBOCYTOPENIC PURPURA [None]
